FAERS Safety Report 4618635-X (Version None)
Quarter: 2005Q1

REPORT INFORMATION
  Report Type: 
  Country: None (occurrence: None)
  Receive Date: 20050323
  Receipt Date: 20050309
  Transmission Date: 20050727
  Serious: Yes (Other)
  Sender: FDA-Public Use
  Company Number: 8009391

PATIENT
  Age: 21 Year
  Sex: Female
  Weight: 70.45 kg

DRUGS (7)
  1. KEPPRA [Suspect]
     Indication: DEPRESSED LEVEL OF CONSCIOUSNESS
     Dosage: 1500 MG/D PO
     Route: 048
     Dates: start: 20041201, end: 20050301
  2. KEPPRA [Suspect]
     Indication: LOSS OF CONSCIOUSNESS
     Dosage: 1500 MG/D PO
     Route: 048
     Dates: start: 20041201, end: 20050301
  3. KEPPRA [Suspect]
     Indication: STARING
     Dosage: 1500 MG/D PO
     Route: 048
     Dates: start: 20041201, end: 20050301
  4. KEPPRA [Suspect]
     Indication: DEPRESSED LEVEL OF CONSCIOUSNESS
     Dosage: 1000 MG 2/D PO
     Route: 048
     Dates: start: 20050301
  5. KEPPRA [Suspect]
     Indication: LOSS OF CONSCIOUSNESS
     Dosage: 1000 MG 2/D PO
     Route: 048
     Dates: start: 20050301
  6. KEPPRA [Suspect]
     Indication: STARING
     Dosage: 1000 MG 2/D PO
     Route: 048
     Dates: start: 20050301
  7. AMOXICILLIN [Suspect]
     Indication: EAR INFECTION
     Dosage: PO
     Route: 048
     Dates: start: 20050201, end: 20050301

REACTIONS (4)
  - DEPRESSED LEVEL OF CONSCIOUSNESS [None]
  - EAR INFECTION [None]
  - LOSS OF CONSCIOUSNESS [None]
  - STARING [None]
